FAERS Safety Report 19582420 (Version 1)
Quarter: 2021Q3

REPORT INFORMATION
  Report Type: Spontaneous
  Country: US (occurrence: US)
  Receive Date: 20210719
  Receipt Date: 20210719
  Transmission Date: 20211014
  Serious: No
  Sender: FDA-Public Use
  Company Number: US-GALDERMA-US2021013139

PATIENT

DRUGS (2)
  1. DIFFERIN GEL [Suspect]
     Active Substance: ADAPALENE
     Indication: PRODUCT USED FOR UNKNOWN INDICATION
     Dosage: 1 DOSAGE FORM, BID, 2 TIMES A DAY
     Route: 061
  2. DIFFERIN GEL [Suspect]
     Active Substance: ADAPALENE
     Dosage: 1 DOSAGE FORM, LESS OFTEN
     Route: 061

REACTIONS (5)
  - Intentional product misuse [Recovered/Resolved]
  - Skin exfoliation [Recovered/Resolved]
  - Intentional underdose [Recovered/Resolved]
  - Dry skin [Unknown]
  - Intentional overdose [Recovered/Resolved]
